FAERS Safety Report 19267466 (Version 1)
Quarter: 2021Q2

REPORT INFORMATION
  Report Type: Spontaneous
  Country: US (occurrence: US)
  Receive Date: 20210518
  Receipt Date: 20210518
  Transmission Date: 20210717
  Serious: No
  Sender: FDA-Public Use
  Company Number: US-BION-008634

PATIENT

DRUGS (1)
  1. A+ HEALTH IBUPROFEN 200 MG SOFT GELS 300 CT [Suspect]
     Active Substance: IBUPROFEN
     Indication: PRODUCT USED FOR UNKNOWN INDICATION
     Dosage: STRENGTH: 200 MG

REACTIONS (2)
  - Nausea [Unknown]
  - Product packaging issue [Unknown]
